FAERS Safety Report 14707872 (Version 36)
Quarter: 2022Q4

REPORT INFORMATION
  Report Type: Spontaneous
  Country: US (occurrence: US)
  Receive Date: 20180403
  Receipt Date: 20221228
  Transmission Date: 20230113
  Serious: Yes (Hospitalization, Other)
  Sender: FDA-Public Use
  Company Number: US-PFIZER INC-2017231089

PATIENT
  Age: 63 Year
  Sex: Female

DRUGS (14)
  1. ACCUPRIL [Suspect]
     Active Substance: QUINAPRIL HYDROCHLORIDE
     Indication: Labile hypertension
     Dosage: UNK
     Dates: start: 1995
  2. ACCUPRIL [Suspect]
     Active Substance: QUINAPRIL HYDROCHLORIDE
     Indication: Blood pressure abnormal
     Dosage: UNK (^I STARTED USING IT IN 1996)
     Dates: start: 1996
  3. ACCUPRIL [Suspect]
     Active Substance: QUINAPRIL HYDROCHLORIDE
     Indication: Cardiac dysfunction
     Dosage: 10 MG, TWICE DAILY (AT 1AM AND 1PM)
     Route: 048
  4. ACCUPRIL [Suspect]
     Active Substance: QUINAPRIL HYDROCHLORIDE
     Dosage: 20 MG, TWICE DAILY (AT 1:00AM AND 1:00PM)
  5. ACCUPRIL [Suspect]
     Active Substance: QUINAPRIL HYDROCHLORIDE
     Dosage: 20 MG, UNK
  6. ACCUPRIL [Suspect]
     Active Substance: QUINAPRIL HYDROCHLORIDE
     Dosage: 30 MG, 2X/DAY (IN THE MORNING AND AT NIGHT)
     Route: 048
  7. ACCUPRIL [Suspect]
     Active Substance: QUINAPRIL HYDROCHLORIDE
     Dosage: 10 MG, UNK
  8. ACCUPRIL [Suspect]
     Active Substance: QUINAPRIL HYDROCHLORIDE
     Dosage: UNK, (I HAVE TO TAKE 20 AND THERE^S EVEN SOMETIMES WHEN I HAVE TO TAKE 40)
  9. ACCUPRIL [Suspect]
     Active Substance: QUINAPRIL HYDROCHLORIDE
     Dosage: UNK
  10. ACCUPRIL [Suspect]
     Active Substance: QUINAPRIL HYDROCHLORIDE
     Dosage: UNK
  11. PREMARIN [Concomitant]
     Active Substance: ESTROGENS, CONJUGATED
     Dosage: UNK, (QUANTITY FOR 90 DAYS: 4 TUBES 4 GRAMS 3X A WEEK)
  12. DIFLUCAN [Concomitant]
     Active Substance: FLUCONAZOLE
     Dosage: UNK, (QUANTITY FOR 90 DAYS: 30 1 BOTTLE)
  13. DIFLUCAN [Concomitant]
     Active Substance: FLUCONAZOLE
     Dosage: 150 MG (100 MG AND 50 MG)
  14. ALDACTONE [Concomitant]
     Active Substance: SPIRONOLACTONE
     Dosage: UNK

REACTIONS (19)
  - Malaise [Unknown]
  - Labile hypertension [Unknown]
  - Cerebrovascular accident [Unknown]
  - Lower limb fracture [Unknown]
  - Bradycardia [Unknown]
  - Atrial fibrillation [Unknown]
  - Infection [Recovering/Resolving]
  - Blood pressure abnormal [Unknown]
  - Fatigue [Unknown]
  - Movement disorder [Unknown]
  - Somnolence [Unknown]
  - Back injury [Unknown]
  - Nervousness [Unknown]
  - Illness [Unknown]
  - Intervertebral disc protrusion [Unknown]
  - Knee deformity [Unknown]
  - Feeling abnormal [Unknown]
  - Recalled product administered [Unknown]
  - Intentional product misuse [Unknown]

NARRATIVE: CASE EVENT DATE: 20190507
